FAERS Safety Report 19199932 (Version 1)
Quarter: 2021Q2

REPORT INFORMATION
  Report Type: Spontaneous
  Country: CA (occurrence: CA)
  Receive Date: 20210430
  Receipt Date: 20210430
  Transmission Date: 20210717
  Serious: Yes (Hospitalization)
  Sender: FDA-Public Use
  Company Number: CA-TEVA-2021-CA-1905215

PATIENT
  Age: 70 Year
  Sex: Female

DRUGS (3)
  1. TOPOTECAN HYDROCHLORIDE FOR INJECTION SINGLE?USE VIAL [Suspect]
     Active Substance: TOPOTECAN HYDROCHLORIDE
     Route: 065
  2. MVASI [Suspect]
     Active Substance: BEVACIZUMAB-AWWB
     Route: 065
  3. CARBOPLATIN INJECTION [Suspect]
     Active Substance: CARBOPLATIN
     Route: 065

REACTIONS (1)
  - Febrile neutropenia [Unknown]
